FAERS Safety Report 14580853 (Version 1)
Quarter: 2018Q1

REPORT INFORMATION
  Report Type: Spontaneous
  Country: IN (occurrence: IN)
  Receive Date: 20180228
  Receipt Date: 20180228
  Transmission Date: 20180509
  Serious: Yes (Other)
  Sender: FDA-Public Use
  Company Number: IN-BION-007001

PATIENT
  Age: 52 Year
  Sex: Female

DRUGS (8)
  1. LEVOFLOXACIN/LEVOFLOXACIN MESYLATE [Concomitant]
  2. FLUCONAZOLE. [Concomitant]
     Active Substance: FLUCONAZOLE
  3. PARACETAMOL [Concomitant]
     Active Substance: ACETAMINOPHEN
  4. ETORICOXIB [Concomitant]
     Active Substance: ETORICOXIB
  5. METHDILAZINE/METHDILAZINE HYDROCHLORIDE [Concomitant]
  6. FEXOFENADINE/FEXOFENADINE HYDROCHLORIDE [Concomitant]
  7. LEVOCETIRIZINE/LEVOCETIRIZINE DIHYDROCHLORIDE [Suspect]
     Active Substance: LEVOCETIRIZINE DIHYDROCHLORIDE
     Indication: PRODUCT USED FOR UNKNOWN INDICATION
     Dosage: PROVOCATION WITH LEVOCETIRIZINE
  8. CETIRIZINE/CETIRIZINE HYDROCHLORIDE [Suspect]
     Active Substance: CETIRIZINE HYDROCHLORIDE
     Indication: PRODUCT USED FOR UNKNOWN INDICATION

REACTIONS (1)
  - Fixed eruption [Unknown]
